FAERS Safety Report 11094819 (Version 3)
Quarter: 2015Q2

REPORT INFORMATION
  Report Type: Spontaneous
  Country: FR (occurrence: FR)
  Receive Date: 20150506
  Receipt Date: 20150524
  Transmission Date: 20150821
  Serious: Yes (Hospitalization)
  Sender: FDA-Public Use
  Company Number: FR-JNJFOC-20150421636

PATIENT
  Sex: Female

DRUGS (4)
  1. USTEKINUMAB [Suspect]
     Active Substance: USTEKINUMAB
     Indication: PSORIASIS
     Route: 058
     Dates: start: 20100208, end: 20141123
  2. CERTOLIZUMAB [Concomitant]
     Active Substance: CERTOLIZUMAB
     Route: 065
     Dates: start: 200509
  3. NOVATREX (METHOTREXATE) [Suspect]
     Active Substance: METHOTREXATE SODIUM
     Indication: GUTTATE PSORIASIS
     Route: 048
     Dates: start: 200502
  4. NOVATREX (METHOTREXATE) [Suspect]
     Active Substance: METHOTREXATE SODIUM
     Indication: GUTTATE PSORIASIS
     Dosage: FOR 8 WEEKS
     Route: 048
     Dates: start: 20091119, end: 20100310

REACTIONS (1)
  - Invasive lobular breast carcinoma [Not Recovered/Not Resolved]
